FAERS Safety Report 7555244-7 (Version None)
Quarter: 2011Q2

REPORT INFORMATION
  Report Type: 
  Country: None (occurrence: None)
  Receive Date: 20110617
  Receipt Date: 20110614
  Transmission Date: 20111010
  Serious: Yes (Death, Hospitalization, Other)
  Sender: FDA-Public Use
  Company Number: PHHY2011CA33944

PATIENT
  Sex: Male

DRUGS (3)
  1. SANDOSTATIN [Suspect]
  2. SANDOSTATIN LAR [Suspect]
     Indication: INTESTINAL OBSTRUCTION
     Dosage: 20 MG EVERY 4 WEEKS
     Route: 030
     Dates: start: 20110323
  3. SANDOSTATIN LAR [Suspect]
     Dosage: 20 MG EVERY 4 WEEKS
     Route: 030
     Dates: end: 20110401

REACTIONS (3)
  - PROCTALGIA [None]
  - DEATH [None]
  - INTESTINAL OBSTRUCTION [None]
